FAERS Safety Report 10100553 (Version 1)
Quarter: 2014Q2

REPORT INFORMATION
  Report Type: Spontaneous
  Country: FR (occurrence: FR)
  Receive Date: 20140423
  Receipt Date: 20140423
  Transmission Date: 20141212
  Serious: Yes (Other)
  Sender: FDA-Public Use
  Company Number: FR-GLAXOSMITHKLINE-B0986830A

PATIENT
  Age: 40 Year
  Sex: Male
  Weight: 100 kg

DRUGS (1)
  1. LAMICTAL [Suspect]
     Indication: EPILEPSY
     Dosage: 150MG PER DAY
     Route: 048

REACTIONS (4)
  - Feeling drunk [Unknown]
  - Vision blurred [Unknown]
  - Dizziness [Unknown]
  - Petit mal epilepsy [Not Recovered/Not Resolved]
